FAERS Safety Report 5401718-4 (Version None)
Quarter: 2007Q3

REPORT INFORMATION
  Report Type: 
  Country: None (occurrence: None)
  Receive Date: 20070731
  Receipt Date: 20070718
  Transmission Date: 20080115
  Serious: Yes (Other)
  Sender: FDA-Public Use
  Company Number: US-ELI_LILLY_AND_COMPANY-US200707005059

PATIENT
  Age: 44 Year
  Sex: Female

DRUGS (7)
  1. CYMBALTA [Suspect]
     Indication: DEPRESSION
     Dosage: 30 MG, 2/D
  2. CYMBALTA [Suspect]
     Dosage: UNK MG, UNK
  3. MORPHINE SULFATE [Concomitant]
  4. VALIUM [Concomitant]
  5. OMEPRAZOLE [Concomitant]
  6. SYNTHROID [Concomitant]
  7. SOMA [Concomitant]

REACTIONS (1)
  - ACUTE HEPATIC FAILURE [None]
